FAERS Safety Report 9735394 (Version 1)
Quarter: 2013Q4

REPORT INFORMATION
  Report Type: Spontaneous
  Country: US (occurrence: None)
  Receive Date: 20131205
  Receipt Date: 20131205
  Transmission Date: 20140711
  Serious: Yes (Other)
  Sender: FDA-Public Use
  Company Number: None

PATIENT
  Age: 59 Year
  Sex: Male
  Weight: 88.45 kg

DRUGS (3)
  1. DEPLIN [Suspect]
     Indication: UNEVALUABLE EVENT
     Dosage: 7.5 MG 1 PILL DAILY BY MOUTH
     Route: 048
     Dates: start: 20131011, end: 20131115
  2. SIMVASTATIN [Concomitant]
  3. TESTOSTERONE [Concomitant]

REACTIONS (1)
  - Trigeminal neuralgia [None]
